FAERS Safety Report 25154132 (Version 2)
Quarter: 2025Q2

REPORT INFORMATION
  Report Type: Spontaneous
  Country: FR (occurrence: FR)
  Receive Date: 20250403
  Receipt Date: 20250428
  Transmission Date: 20250717
  Serious: Yes (Other)
  Sender: CELLTRION
  Company Number: FR-ROCHE-10000092050

PATIENT

DRUGS (27)
  1. BEVACIZUMAB [Suspect]
     Active Substance: BEVACIZUMAB
     Indication: Hepatocellular carcinoma
     Route: 042
     Dates: start: 20240416
  2. TIRAGOLUMAB [Suspect]
     Active Substance: TIRAGOLUMAB
     Indication: Hepatocellular carcinoma
     Route: 042
     Dates: start: 20240506
  3. ATEZOLIZUMAB [Suspect]
     Active Substance: ATEZOLIZUMAB
     Indication: Hepatocellular carcinoma
     Route: 042
     Dates: start: 20240416
  4. ABACAVIR [Concomitant]
     Active Substance: ABACAVIR
     Route: 048
     Dates: start: 1998, end: 20240729
  5. LAMIVUDINE [Concomitant]
     Active Substance: LAMIVUDINE
     Route: 048
     Dates: start: 1998
  6. NEVIRAPINE [Concomitant]
     Active Substance: NEVIRAPINE
     Route: 048
     Dates: start: 1998, end: 20240729
  7. ROSUVASTATIN [Concomitant]
     Active Substance: ROSUVASTATIN
     Indication: Blood cholesterol increased
     Route: 048
     Dates: start: 202012
  8. PAROXETINE [Concomitant]
     Active Substance: PAROXETINE
     Indication: Depression
     Route: 048
  9. CICLOPIROX OLAMINE [Concomitant]
     Active Substance: CICLOPIROX OLAMINE
     Indication: Seborrhoeic dermatitis
     Route: 061
  10. TRAMADOL [Concomitant]
     Active Substance: TRAMADOL
     Route: 048
     Dates: start: 20240717, end: 20240803
  11. TRAMADOL HYDROCHLORIDE [Concomitant]
     Active Substance: TRAMADOL HYDROCHLORIDE
     Indication: Otitis externa
     Route: 048
     Dates: start: 20240717, end: 20240803
  12. TRAMADOL HYDROCHLORIDE [Concomitant]
     Active Substance: TRAMADOL HYDROCHLORIDE
     Route: 048
     Dates: start: 20240819, end: 20240827
  13. DOLUTEGRAVIR [Concomitant]
     Active Substance: DOLUTEGRAVIR
     Route: 048
     Dates: start: 20240730
  14. CEFTRIAXONE [Concomitant]
     Active Substance: CEFTRIAXONE
     Indication: Cholecystitis
     Route: 042
     Dates: start: 20240719, end: 20240729
  15. METRONIDAZOLE [Concomitant]
     Active Substance: METRONIDAZOLE
     Indication: Cholecystitis
     Route: 042
     Dates: start: 20240719, end: 20240729
  16. AMOXICILLIN [Concomitant]
     Active Substance: AMOXICILLIN
     Indication: Cholecystitis
     Route: 048
     Dates: start: 20240729, end: 20240803
  17. CLAVULANIC ACID [Concomitant]
     Active Substance: CLAVULANIC ACID
     Indication: Cholecystitis
     Route: 048
     Dates: start: 20240729, end: 20240803
  18. LANSOPRAZOLE [Concomitant]
     Active Substance: LANSOPRAZOLE
     Indication: Gastrooesophageal reflux disease
     Route: 048
     Dates: start: 20240723
  19. CHOLECALCIFEROL [Concomitant]
     Active Substance: CHOLECALCIFEROL
     Indication: Vitamin D deficiency
     Dosage: 5000 [IU]/ EVERY 1 WEEK
     Route: 048
     Dates: start: 20240720, end: 20240917
  20. MONTMORILLONITE [Concomitant]
     Active Substance: MONTMORILLONITE
     Indication: Diarrhoea
     Route: 048
     Dates: start: 20240731
  21. LOPERAMIDE [Concomitant]
     Active Substance: LOPERAMIDE
     Indication: Diarrhoea
     Route: 048
     Dates: start: 20240801, end: 20240820
  22. LOPERAMIDE [Concomitant]
     Active Substance: LOPERAMIDE
     Route: 048
     Dates: start: 20241018
  23. ANTIPYRINE [Concomitant]
     Active Substance: ANTIPYRINE
     Indication: Otitis externa
     Route: 014
     Dates: start: 20240817, end: 20240820
  24. AUGMENTIN [Concomitant]
     Active Substance: AMOXICILLIN\CLAVULANATE POTASSIUM
     Indication: Otitis externa
     Route: 048
     Dates: start: 20240819, end: 20240820
  25. OFLOXACIN [Concomitant]
     Active Substance: OFLOXACIN
     Indication: Otitis externa
     Route: 014
     Dates: start: 20240820, end: 20240827
  26. ACETAMINOPHEN [Concomitant]
     Active Substance: ACETAMINOPHEN
     Indication: Otitis externa
     Route: 048
     Dates: start: 20240819, end: 20240827
  27. RACECADOTRIL [Concomitant]
     Active Substance: RACECADOTRIL
     Indication: Diarrhoea
     Route: 048
     Dates: start: 20241015

REACTIONS (2)
  - Adrenal insufficiency [Not Recovered/Not Resolved]
  - Intentional product use issue [Unknown]

NARRATIVE: CASE EVENT DATE: 20240819
